FAERS Safety Report 6113818-4 (Version None)
Quarter: 2009Q1

REPORT INFORMATION
  Report Type: 
  Country: None (occurrence: None)
  Receive Date: 20090312
  Receipt Date: 20090304
  Transmission Date: 20090719
  Serious: Yes (Hospitalization)
  Sender: FDA-Public Use
  Company Number: US-BAXTER-2009BH003757

PATIENT

DRUGS (2)
  1. DURAMORPH PF [Suspect]
     Indication: PAIN MANAGEMENT
     Route: 037
     Dates: end: 20050407
  2. DURAMORPH PF [Suspect]
     Route: 037
     Dates: start: 20050407

REACTIONS (8)
  - ASTHENIA [None]
  - BACK PAIN [None]
  - CONFUSIONAL STATE [None]
  - HEADACHE [None]
  - HYPOAESTHESIA [None]
  - NAUSEA [None]
  - PAIN IN EXTREMITY [None]
  - TINNITUS [None]
